FAERS Safety Report 9391767 (Version 1)
Quarter: 2013Q3

REPORT INFORMATION
  Report Type: Spontaneous
  Country: GB (occurrence: GB)
  Receive Date: 20130709
  Receipt Date: 20130709
  Transmission Date: 20140515
  Serious: Yes (Hospitalization, Other)
  Sender: FDA-Public Use
  Company Number: GB-TEVA-416554ISR

PATIENT
  Age: 73 Year
  Sex: Male
  Weight: 80 kg

DRUGS (12)
  1. WARFARIN [Suspect]
  2. INLYTA [Suspect]
     Indication: METASTATIC RENAL CELL CARCINOMA
     Dosage: 3 MG, 2X/DAY
     Route: 048
     Dates: start: 20130416
  3. ATENOLOL [Concomitant]
     Indication: BLOOD PRESSURE
     Dosage: UNK
     Route: 048
     Dates: start: 201305
  4. DOXAZOSIN [Concomitant]
     Indication: BLOOD PRESSURE
     Dosage: UNK
     Route: 048
     Dates: start: 201305
  5. DOXAZOSIN [Concomitant]
     Indication: ARRHYTHMIA
     Dosage: UNK
     Route: 048
     Dates: start: 2010
  6. IRBESARTAN [Concomitant]
     Indication: BLOOD PRESSURE
     Dosage: 300 MG, UNK
     Route: 048
     Dates: start: 2009
  7. IRBESARTAN [Concomitant]
     Indication: ARRHYTHMIA
  8. DIGOXIN [Concomitant]
     Indication: ARRHYTHMIA
     Dosage: UNK
     Route: 048
     Dates: start: 201305
  9. ALLOPURINOL [Concomitant]
     Dosage: UNK
     Dates: start: 1980
  10. THYROXINE [Concomitant]
     Dosage: UNK
     Dates: start: 1980
  11. TINZAPARIN SODIUM [Concomitant]
     Dosage: 14 UNITS
  12. OMEPRAZOLE [Concomitant]
     Indication: DYSPEPSIA
     Dosage: 20 MG, UNK

REACTIONS (11)
  - Pneumonitis [Recovering/Resolving]
  - Hepatic enzyme increased [Recovered/Resolved]
  - Jaundice [Recovered/Resolved]
  - Drug interaction [Recovered/Resolved]
  - Arrhythmia [Recovered/Resolved]
  - International normalised ratio abnormal [Recovered/Resolved]
  - Balance disorder [Unknown]
  - Hyperhidrosis [Unknown]
  - Weight decreased [Unknown]
  - Muscle atrophy [Unknown]
  - Nail disorder [Unknown]
